FAERS Safety Report 9897204 (Version 2)
Quarter: 2014Q1

REPORT INFORMATION
  Report Type: Spontaneous
  Country: MY (occurrence: MY)
  Receive Date: 20140214
  Receipt Date: 20140226
  Transmission Date: 20141002
  Serious: Yes (Death)
  Sender: FDA-Public Use
  Company Number: MY-ROCHE-1349225

PATIENT
  Sex: 0

DRUGS (1)
  1. MABTHERA [Suspect]
     Indication: MICROANGIOPATHIC HAEMOLYTIC ANAEMIA
     Dosage: ONCE WEEKLY FOR 4 WEEKS
     Route: 042

REACTIONS (1)
  - Gastrointestinal haemorrhage [Fatal]
